FAERS Safety Report 14155785 (Version 1)
Quarter: 2017Q4

REPORT INFORMATION
  Report Type: Spontaneous
  Country: US (occurrence: US)
  Receive Date: 20171103
  Receipt Date: 20171103
  Transmission Date: 20180321
  Serious: No
  Sender: FDA-Public Use
  Company Number: US-009507513-1710USA009170

PATIENT
  Sex: Female
  Weight: 50.34 kg

DRUGS (1)
  1. NEXPLANON [Suspect]
     Active Substance: ETONOGESTREL
     Dosage: 1 DF, UNK
     Route: 059
     Dates: start: 20151118

REACTIONS (4)
  - Device difficult to use [Unknown]
  - Menorrhagia [Unknown]
  - Complication of device removal [Unknown]
  - Complication associated with device [Unknown]

NARRATIVE: CASE EVENT DATE: 201512
